FAERS Safety Report 15265351 (Version 3)
Quarter: 2018Q4

REPORT INFORMATION
  Report Type: Report from Study
  Country: US (occurrence: US)
  Receive Date: 20180810
  Receipt Date: 20181009
  Transmission Date: 20190204
  Serious: Yes (Other)
  Sender: FDA-Public Use
  Company Number: US-PFIZER INC-2018155043

PATIENT
  Age: 59 Year
  Sex: Female

DRUGS (2)
  1. IBRANCE [Suspect]
     Active Substance: PALBOCICLIB
     Dosage: 125 MG, CYCLIC (21 DAYS ON/7 DAYS OFF) (DAILY)
     Route: 048
     Dates: start: 20180411
  2. IBRANCE [Suspect]
     Active Substance: PALBOCICLIB
     Indication: BREAST CANCER FEMALE
     Dosage: 125 MG, CYCLIC (DAILY, 21 DAYS ON/14 DAYS OFF)
     Route: 048
     Dates: start: 20180411

REACTIONS (25)
  - Rash papular [Recovered/Resolved]
  - Oral pain [Recovered/Resolved]
  - Facial pain [Unknown]
  - White blood cell count decreased [Unknown]
  - Appetite disorder [Unknown]
  - Dysphagia [Unknown]
  - Chapped lips [Unknown]
  - Rash [Recovered/Resolved]
  - Skin exfoliation [Unknown]
  - Hypokalaemia [Recovered/Resolved]
  - Nausea [Recovered/Resolved]
  - Condition aggravated [Unknown]
  - Rash erythematous [Recovered/Resolved]
  - Glossodynia [Unknown]
  - Hypophagia [Recovered/Resolved]
  - Back pain [Unknown]
  - Pruritus [Not Recovered/Not Resolved]
  - Poor quality sleep [Unknown]
  - Fatigue [Unknown]
  - Stomatitis [Recovered/Resolved]
  - Decreased appetite [Unknown]
  - Pain [Unknown]
  - Constipation [Unknown]
  - Dry skin [Recovering/Resolving]
  - Asthenia [Unknown]

NARRATIVE: CASE EVENT DATE: 2018
